FAERS Safety Report 7323567-2 (Version None)
Quarter: 2011Q1

REPORT INFORMATION
  Report Type: 
  Country: None (occurrence: None)
  Receive Date: 20110301
  Receipt Date: 20110217
  Transmission Date: 20110831
  Serious: Yes (Death, Hospitalization)
  Sender: FDA-Public Use
  Company Number: FR-SANOFI-AVENTIS-2011SA010761

PATIENT
  Age: 78 Year
  Sex: Male

DRUGS (6)
  1. PARACETAMOL [Concomitant]
     Route: 048
     Dates: end: 20100108
  2. CARDENSIEL [Suspect]
     Route: 048
     Dates: start: 20091208, end: 20100108
  3. PROZAC [Suspect]
     Route: 048
     Dates: start: 20091225, end: 20100108
  4. SOLUPRED [Concomitant]
     Route: 048
     Dates: end: 20100108
  5. LASIX [Suspect]
     Route: 048
     Dates: start: 20091208, end: 20100108
  6. CHLORAMINOPHENE ^TECHNI-PHARMA^ [Concomitant]
     Route: 048
     Dates: end: 20100108

REACTIONS (3)
  - LIVER INJURY [None]
  - HEPATIC FAILURE [None]
  - JAUNDICE CHOLESTATIC [None]
